FAERS Safety Report 4932928-8 (Version None)
Quarter: 2006Q1

REPORT INFORMATION
  Report Type: 
  Country: None (occurrence: None)
  Receive Date: 20060302
  Receipt Date: 20060302
  Transmission Date: 20060701
  Serious: Yes (Hospitalization, Other)
  Sender: FDA-Public Use
  Company Number: None

PATIENT
  Sex: Male
  Weight: 71 kg

DRUGS (4)
  1. CYCLOPHOSPHAMIDE [Suspect]
     Indication: DIFFUSE LARGE B-CELL LYMPHOMA
     Dosage: 1390 MG
     Dates: start: 20060110, end: 20060110
  2. DOXORUBICIN HCL [Suspect]
     Dosage: 90 MG
     Dates: start: 20060110, end: 20060110
  3. PREDNISONE [Suspect]
     Dosage: 400 MG
     Dates: start: 20060110, end: 20060114
  4. RITUXIMAB(MOAB C2B8 ANTI CD20) [Suspect]
     Dosage: 690 MG
     Dates: start: 20060110, end: 20060110

REACTIONS (5)
  - ABDOMINAL PAIN [None]
  - GASTROINTESTINAL DISORDER [None]
  - INFLAMMATION [None]
  - ORAL INTAKE REDUCED [None]
  - PNEUMOPERITONEUM [None]
